FAERS Safety Report 13961097 (Version 1)
Quarter: 2017Q3

REPORT INFORMATION
  Report Type: Spontaneous
  Country: CN (occurrence: CN)
  Receive Date: 20170912
  Receipt Date: 20170912
  Transmission Date: 20171128
  Serious: Yes (Other)
  Sender: FDA-Public Use
  Company Number: CN-GLAXOSMITHKLINE-CN2017GSK139310

PATIENT
  Age: 45 Year
  Sex: Female
  Weight: 50.5 kg

DRUGS (3)
  1. SERETIDE [Suspect]
     Active Substance: FLUTICASONE PROPIONATE\SALMETEROL XINAFOATE
     Dosage: UNK, BOUGHT ON INTERNET AGAIN
     Route: 055
     Dates: start: 201708
  2. SERETIDE [Suspect]
     Active Substance: FLUTICASONE PROPIONATE\SALMETEROL XINAFOATE
     Dosage: UNK, BOUGHT SERETIDE ACCUHALER ON INTERNET
     Route: 055
  3. SERETIDE [Suspect]
     Active Substance: FLUTICASONE PROPIONATE\SALMETEROL XINAFOATE
     Indication: ASTHMA
     Dosage: 1 PUFF(S), USED LONG TIME AS ONE PUFF ONE DAY OR ONE PUFF EVERY SEVERAL DAYS
     Route: 055

REACTIONS (3)
  - Drug dependence [Unknown]
  - Product use issue [Unknown]
  - Underdose [Unknown]
